FAERS Safety Report 18159696 (Version 1)
Quarter: 2020Q3

REPORT INFORMATION
  Report Type: Spontaneous
  Country: CA (occurrence: CA)
  Receive Date: 20200818
  Receipt Date: 20200818
  Transmission Date: 20201103
  Serious: Yes (Hospitalization, Other)
  Sender: FDA-Public Use
  Company Number: CA-SUN PHARMACEUTICAL INDUSTRIES LTD-2019R1-219116

PATIENT
  Age: 63 Year
  Sex: Female

DRUGS (2)
  1. OCTREOTIDE. [Suspect]
     Active Substance: OCTREOTIDE
     Indication: METASTATIC NEOPLASM
     Dosage: INCREASED TO 50 MG EVERY MONTH ONE YEAR AGO
     Route: 065
  2. EVEROLIMUS. [Suspect]
     Active Substance: EVEROLIMUS
     Indication: IMMUNOSUPPRESSANT DRUG THERAPY
     Dosage: 10 MILLIGRAM, DAILY
     Route: 065

REACTIONS (5)
  - Haemobilia [Not Recovered/Not Resolved]
  - Cholecystitis [Unknown]
  - Gallbladder enlargement [Unknown]
  - Gallbladder necrosis [Unknown]
  - Cholelithiasis [Unknown]
